FAERS Safety Report 11603215 (Version 1)
Quarter: 2015Q4

REPORT INFORMATION
  Report Type: Spontaneous
  Country: US (occurrence: US)
  Receive Date: 20151006
  Receipt Date: 20151006
  Transmission Date: 20160304
  Serious: No
  Sender: FDA-Public Use
  Company Number: US-AMGEN-USASP2014098478

PATIENT
  Age: 74 Year
  Sex: Female

DRUGS (7)
  1. OSTEO BI-FLEX                      /01431201/ [Concomitant]
     Dosage: UNK
  2. COENZYME Q10 [Concomitant]
     Active Substance: UBIDECARENONE
     Indication: BLOOD CHOLESTEROL
     Dosage: UNK
  3. FLECAINIDE [Concomitant]
     Active Substance: FLECAINIDE
  4. VITAMIN D                          /00107901/ [Concomitant]
     Active Substance: ERGOCALCIFEROL
     Dosage: UNK
  5. CALCIUM [Concomitant]
     Active Substance: CALCIUM
     Dosage: UNK
  6. PROLIA [Suspect]
     Active Substance: DENOSUMAB
     Indication: PRODUCT USED FOR UNKNOWN INDICATION
     Dosage: UNK
     Route: 065
     Dates: start: 201401
  7. HYDROCHLOROTHIAZIDE. [Concomitant]
     Active Substance: HYDROCHLOROTHIAZIDE
     Dosage: UNK

REACTIONS (5)
  - Pain in jaw [Unknown]
  - Swelling face [Unknown]
  - Inappropriate schedule of drug administration [Unknown]
  - Tooth disorder [Unknown]
  - Nausea [Unknown]

NARRATIVE: CASE EVENT DATE: 201412
